FAERS Safety Report 19090612 (Version 1)
Quarter: 2021Q2

REPORT INFORMATION
  Report Type: Spontaneous
  Country: US (occurrence: US)
  Receive Date: 20210405
  Receipt Date: 20210405
  Transmission Date: 20210717
  Serious: No
  Sender: FDA-Public Use
  Company Number: US-SA-2021SA110770

PATIENT
  Sex: Female

DRUGS (15)
  1. ASMANEX [Concomitant]
     Active Substance: MOMETASONE FUROATE
  2. LOSARTAN. [Concomitant]
     Active Substance: LOSARTAN
  3. ZYRTEC [Concomitant]
     Active Substance: CETIRIZINE HYDROCHLORIDE
  4. MAGNESIUM [Concomitant]
     Active Substance: MAGNESIUM
  5. ALBUTEROL [SALBUTAMOL] [Concomitant]
     Active Substance: ALBUTEROL
  6. BIOTIN [Concomitant]
     Active Substance: BIOTIN
  7. SPIRIVA [Concomitant]
     Active Substance: TIOTROPIUM BROMIDE MONOHYDRATE
  8. SYMBICORT [Concomitant]
     Active Substance: BUDESONIDE\FORMOTEROL FUMARATE DIHYDRATE
  9. VITAMINS NOS [Concomitant]
     Active Substance: VITAMINS
  10. DUPIXENT [Suspect]
     Active Substance: DUPILUMAB
     Indication: DERMATITIS ATOPIC
     Dosage: UNK
     Route: 058
     Dates: start: 20210323
  11. SINGULAIR [Concomitant]
     Active Substance: MONTELUKAST SODIUM
  12. GINKGO BILOVA [Concomitant]
  13. BENADRYL [Concomitant]
     Active Substance: DIPHENHYDRAMINE HYDROCHLORIDE
  14. FAMOTIDINE. [Concomitant]
     Active Substance: FAMOTIDINE
  15. LEVOTHYROXIN [Concomitant]
     Active Substance: LEVOTHYROXINE

REACTIONS (2)
  - Rash pruritic [Unknown]
  - Condition aggravated [Unknown]
